FAERS Safety Report 11633107 (Version 1)
Quarter: 2015Q4

REPORT INFORMATION
  Report Type: Spontaneous
  Country: US (occurrence: None)
  Receive Date: 20151014
  Receipt Date: 20151014
  Transmission Date: 20160304
  Serious: Yes (Life-Threatening, Other)
  Sender: FDA-Public Use
  Company Number: None

PATIENT
  Age: 75 Year
  Sex: Female
  Weight: 74.84 kg

DRUGS (1)
  1. HUMIRA [Suspect]
     Active Substance: ADALIMUMAB
     Indication: PSORIASIS
     Dosage: 1 SHOT EVERY TWO WEEKS
     Dates: start: 20130616, end: 20150528

REACTIONS (3)
  - Asthma [None]
  - Lung infection [None]
  - Pulmonary oedema [None]

NARRATIVE: CASE EVENT DATE: 20150611
